FAERS Safety Report 22642412 (Version 1)
Quarter: 2023Q2

REPORT INFORMATION
  Report Type: Spontaneous
  Country: US (occurrence: US)
  Receive Date: 20230626
  Receipt Date: 20230626
  Transmission Date: 20230722
  Serious: No
  Sender: FDA-Public Use
  Company Number: US-BEIGENE-BGN-2023-005962

PATIENT

DRUGS (2)
  1. BRUKINSA [Suspect]
     Active Substance: ZANUBRUTINIB
     Indication: Chronic lymphocytic leukaemia
     Dosage: 2 DOSAGE FORM, BID (2 IN THE MORNING AND 2 IN THE EVENING)
     Route: 048
     Dates: start: 20230518
  2. BRUKINSA [Suspect]
     Active Substance: ZANUBRUTINIB
     Dosage: 1 DOSAGE FORM, BID (1 IN THE MORNING AND 1 IN THE EVENING)
     Route: 048

REACTIONS (6)
  - Adverse reaction [Unknown]
  - Nausea [Unknown]
  - Vomiting [Unknown]
  - Abdominal discomfort [Unknown]
  - Diarrhoea [Unknown]
  - Fatigue [Unknown]
